FAERS Safety Report 9755982 (Version 1)
Quarter: 2013Q4

REPORT INFORMATION
  Report Type: Spontaneous
  Country: CA (occurrence: CA)
  Receive Date: 20131213
  Receipt Date: 20131213
  Transmission Date: 20140711
  Serious: Yes (Other)
  Sender: FDA-Public Use
  Company Number: CA-GLAXOSMITHKLINE-A1052713A

PATIENT
  Age: 43 Year
  Sex: Female

DRUGS (6)
  1. TYKERB [Suspect]
     Indication: PRODUCT USED FOR UNKNOWN INDICATION
     Route: 065
     Dates: start: 201209, end: 201309
  2. HERCEPTIN [Suspect]
     Indication: BREAST CANCER METASTATIC
     Route: 065
     Dates: start: 2009
  3. XELODA [Suspect]
     Indication: PRODUCT USED FOR UNKNOWN INDICATION
     Route: 065
     Dates: start: 201209, end: 201309
  4. DECADRON [Suspect]
     Indication: PRODUCT USED FOR UNKNOWN INDICATION
     Route: 065
  5. TAXOL [Suspect]
     Indication: PRODUCT USED FOR UNKNOWN INDICATION
     Route: 065
     Dates: start: 2009
  6. KEPPRA [Concomitant]

REACTIONS (9)
  - Convulsion [Unknown]
  - Metastases to central nervous system [Unknown]
  - Brain operation [Unknown]
  - Musculoskeletal disorder [Unknown]
  - Muscle atrophy [Unknown]
  - Onychomadesis [Unknown]
  - Dyspnoea [Unknown]
  - Weight decreased [Unknown]
  - Tremor [Unknown]
